FAERS Safety Report 9785352 (Version 2)
Quarter: 2014Q1

REPORT INFORMATION
  Report Type: Spontaneous
  Country: JP (occurrence: None)
  Receive Date: 20131223
  Receipt Date: 20140106
  Transmission Date: 20141002
  Serious: Yes (Death)
  Sender: FDA-Public Use
  Company Number: JP-014069

PATIENT
  Age: 79 Year
  Sex: Male
  Weight: 40.9 kg

DRUGS (2)
  1. DEGARELIX [Suspect]
     Indication: PROSTATE CANCER METASTATIC
     Route: 058
     Dates: start: 20130530, end: 20130530
  2. BICALUTAMIDE [Concomitant]

REACTIONS (2)
  - Death [None]
  - Prostate cancer [None]
